FAERS Safety Report 5902904-7 (Version None)
Quarter: 2008Q3

REPORT INFORMATION
  Report Type: 
  Country: None (occurrence: None)
  Receive Date: 20080930
  Receipt Date: 20080923
  Transmission Date: 20090109
  Serious: Yes (Other)
  Sender: FDA-Public Use
  Company Number: PHHY2008FR22348

PATIENT
  Age: 94 Year
  Sex: Female

DRUGS (2)
  1. EXELON [Suspect]
     Indication: DEMENTIA ALZHEIMER'S TYPE
     Dosage: 4.6 MG
     Route: 062
     Dates: start: 20080601
  2. FUROSEMIDE [Concomitant]

REACTIONS (2)
  - APHASIA [None]
  - CEREBROVASCULAR ACCIDENT [None]
